FAERS Safety Report 4315838-9 (Version None)
Quarter: 2004Q1

REPORT INFORMATION
  Report Type: 
  Country: None (occurrence: None)
  Receive Date: 20040310
  Receipt Date: 20040227
  Transmission Date: 20041129
  Serious: Yes (Hospitalization, Disabling)
  Sender: FDA-Public Use
  Company Number: MK200403-0020-1

PATIENT
  Sex: Male

DRUGS (3)
  1. ANAFRANIL CAP [Suspect]
     Dosage: TRANSPLACENTAL
     Route: 064
     Dates: end: 20040128
  2. PAXIL [Suspect]
     Dosage: TRANSPLACENTAL
     Route: 064
     Dates: end: 20040128
  3. DEPAKENE [Suspect]
     Route: 064
     Dates: end: 20040128

REACTIONS (5)
  - MATERNAL DRUGS AFFECTING FOETUS [None]
  - MOVEMENT DISORDER [None]
  - NEONATAL DISORDER [None]
  - RESPIRATORY DISORDER NEONATAL [None]
  - TREMOR NEONATAL [None]
